FAERS Safety Report 7939301-9 (Version None)
Quarter: 2011Q4

REPORT INFORMATION
  Report Type: 
  Country: None (occurrence: None)
  Receive Date: 20111125
  Receipt Date: 20101229
  Transmission Date: 20120403
  Serious: No
  Sender: FDA-Public Use
  Company Number: US-BAYER-2011-077621

PATIENT
  Age: 94 Year
  Sex: Female

DRUGS (4)
  1. LEUKINE [Suspect]
     Dosage: UNK
     Dates: start: 20101228
  2. LEUKINE [Suspect]
     Indication: BREAST CANCER METASTATIC
     Dosage: UNK
     Dates: start: 20101226
  3. TAXOL [Concomitant]
  4. LEUKINE [Suspect]
     Dosage: UNK
     Dates: start: 20101227

REACTIONS (1)
  - NASAL OBSTRUCTION [None]
